FAERS Safety Report 15620349 (Version 2)
Quarter: 2019Q1

REPORT INFORMATION
  Report Type: Spontaneous
  Country: US (occurrence: US)
  Receive Date: 20181115
  Receipt Date: 20190122
  Transmission Date: 20190417
  Serious: Yes (Other)
  Sender: FDA-Public Use
  Company Number: US-BAUSCH-BL-2018-011433

PATIENT
  Sex: Female

DRUGS (2)
  1. ATIVAN [Suspect]
     Active Substance: LORAZEPAM
     Indication: PRODUCT USE IN UNAPPROVED INDICATION
  2. ATIVAN [Suspect]
     Active Substance: LORAZEPAM
     Indication: PARKINSON^S DISEASE
     Route: 048

REACTIONS (6)
  - Pain [Not Recovered/Not Resolved]
  - Product taste abnormal [Unknown]
  - Drug dependence [Not Recovered/Not Resolved]
  - Drug ineffective for unapproved indication [Not Recovered/Not Resolved]
  - Product quality issue [Not Recovered/Not Resolved]
  - Tremor [Not Recovered/Not Resolved]
